FAERS Safety Report 8308595-2 (Version None)
Quarter: 2012Q2

REPORT INFORMATION
  Report Type: 
  Country: None (occurrence: None)
  Receive Date: 20120424
  Receipt Date: 20120410
  Transmission Date: 20120825
  Serious: Yes (Death, Hospitalization)
  Sender: FDA-Public Use
  Company Number: JP-ROCHE-439538

PATIENT
  Sex: Female
  Weight: 39 kg

DRUGS (14)
  1. MYCOPHENOLATE MOFETIL (CELLCEPT) [Suspect]
     Indication: PROPHYLAXIS AGAINST TRANSPLANT REJECTION
     Route: 048
     Dates: start: 20040201, end: 20040201
  2. MYCOPHENOLATE MOFETIL (CELLCEPT) [Suspect]
     Route: 048
     Dates: start: 20040318, end: 20040524
  3. NEORAL [Concomitant]
     Dosage: 150-175 MG
     Route: 048
  4. ASPIRIN [Concomitant]
     Route: 048
  5. MAGNESIUM SULFATE [Concomitant]
     Dates: end: 20070302
  6. INTRON [Concomitant]
     Dosage: 300-600 UNITS UNIT DOSE=600 UNIT DAILY DOSE=600 UNIT
     Route: 030
  7. MYCOPHENOLATE MOFETIL (CELLCEPT) [Suspect]
     Route: 048
     Dates: start: 20040202, end: 20040317
  8. REBETOL [Concomitant]
     Route: 048
  9. MYCOPHENOLATE MOFETIL (CELLCEPT) [Suspect]
     Route: 048
     Dates: start: 20040525, end: 20040607
  10. MYCOPHENOLATE MOFETIL (CELLCEPT) [Suspect]
     Route: 048
     Dates: start: 20041105, end: 20070302
  11. OMEPRAZOLE [Concomitant]
     Route: 048
  12. LASIX [Concomitant]
     Route: 048
     Dates: end: 20070302
  13. MEDROL [Concomitant]
     Dosage: 4-20 MG
     Route: 048
  14. URSO 250 [Concomitant]
     Route: 048

REACTIONS (4)
  - HEPATITIS B [None]
  - HEPATITIS FULMINANT [None]
  - HEPATIC FAILURE [None]
  - CHOLANGITIS [None]
